FAERS Safety Report 9120040 (Version 1)
Quarter: 2013Q1

REPORT INFORMATION
  Report Type: Spontaneous
  Country: US (occurrence: US)
  Receive Date: 20130226
  Receipt Date: 20130226
  Transmission Date: 20140127
  Serious: Yes (Other)
  Sender: FDA-Public Use
  Company Number: US-BAYER-2013-022025

PATIENT
  Age: 57 Year
  Sex: Female
  Weight: 78.01 kg

DRUGS (3)
  1. ALEVE GELCAP [Suspect]
     Dosage: 1 DF, BID
     Route: 048
     Dates: start: 20130214, end: 20130215
  2. IBUPROFEN [Concomitant]
  3. DERMATOLOGICALS [Concomitant]
     Indication: ROSACEA

REACTIONS (1)
  - Haemorrhage [Recovered/Resolved]
